FAERS Safety Report 5573929-9 (Version None)
Quarter: 2007Q4

REPORT INFORMATION
  Report Type: 
  Country: None (occurrence: None)
  Receive Date: 20071226
  Receipt Date: 20071213
  Transmission Date: 20080405
  Serious: Yes (Death)
  Sender: FDA-Public Use
  Company Number: US-GENENTECH-252388

PATIENT
  Sex: Female
  Weight: 76.644 kg

DRUGS (2)
  1. BEVACIZUMAB [Suspect]
     Indication: BREAST CANCER METASTATIC
     Dosage: 1550 MG, Q3W
     Route: 042
     Dates: start: 20070115
  2. ABRAXANE [Suspect]
     Indication: BREAST CANCER METASTATIC
     Dosage: 375 MG, UNK
     Dates: start: 20070115

REACTIONS (1)
  - DEATH [None]
